APPROVED DRUG PRODUCT: VIVACTIL
Active Ingredient: PROTRIPTYLINE HYDROCHLORIDE
Strength: 10MG
Dosage Form/Route: TABLET;ORAL
Application: A073645 | Product #001
Applicant: CHARTWELL RX SCIENCES LLC
Approved: Aug 24, 1995 | RLD: No | RS: No | Type: DISCN